FAERS Safety Report 5119498-9 (Version None)
Quarter: 2006Q3

REPORT INFORMATION
  Report Type: 
  Country: None (occurrence: None)
  Receive Date: 20060928
  Receipt Date: 20060921
  Transmission Date: 20061208
  Serious: Yes (Hospitalization)
  Sender: FDA-Public Use
  Company Number: 230162

PATIENT
  Age: 55 Year
  Sex: Male

DRUGS (20)
  1. RITUXAN [Suspect]
     Indication: LEUKAEMIA
     Dosage: 375 MG/M2, INTRAVENOUS
     Route: 042
     Dates: start: 20060811
  2. OXALIPLATIN [Suspect]
     Indication: LEUKAEMIA
     Dosage: 25 MG/M2, INTRAVENOUS
     Route: 042
     Dates: start: 20060811
  3. FLUDARABINE PHOSPHATE [Suspect]
     Indication: LEUKAEMIA
     Dosage: 30 MG/M2, INTRAVENOUS
     Route: 042
     Dates: start: 20060811
  4. CYTARABINE [Suspect]
     Indication: LEUKAEMIA
     Dosage: 1 G/M2, INTRAVENOUS
     Route: 042
     Dates: start: 20060811
  5. VORICONAZOLE (VORICONAZOLE) [Concomitant]
  6. DAPSONE [Concomitant]
  7. EFFEXOR XR [Concomitant]
  8. ATROPINE 1% OPTHALMIC (ATROPINE SULFATE) [Concomitant]
  9. MORPHINE SULFATE [Concomitant]
  10. PREDNISOLONE [Concomitant]
  11. QUININE SULFATE [Concomitant]
  12. TIMOLOL MALEATE OPHTHALMIC SOLUTION (TIMOLOL MALEATE) [Concomitant]
  13. VALTREX [Concomitant]
  14. AUGMENTIN '250' [Concomitant]
  15. CALCIUM (CALCIUM NOS) [Concomitant]
  16. PEPCID (FAMOTODINE) [Concomitant]
  17. PHENERGAN (PROMETHAZINE HYDROCHLORIDE) [Concomitant]
  18. MAGNESIUM HYDROXIDE (MAGNESIUM HYDROXIDE) [Concomitant]
  19. ANTIBIOTIC (ANTIBIOTICS NOS) [Concomitant]
  20. HYDRATION NOS (INTRAVENOUS SOLUTION NOS) [Concomitant]

REACTIONS (8)
  - ASTHENIA [None]
  - ATELECTASIS [None]
  - BACTERIA STOOL IDENTIFIED [None]
  - CLOSTRIDIAL INFECTION [None]
  - DYSPHONIA [None]
  - DYSPNOEA [None]
  - FEBRILE NEUTROPENIA [None]
  - LUNG NEOPLASM [None]
